FAERS Safety Report 7716808-0 (Version None)
Quarter: 2011Q3

REPORT INFORMATION
  Report Type: 
  Country: None (occurrence: None)
  Receive Date: 20110829
  Receipt Date: 20110822
  Transmission Date: 20111222
  Serious: Yes (Hospitalization)
  Sender: FDA-Public Use
  Company Number: JP-ABBOTT-11P-087-0728238-00

PATIENT
  Sex: Male
  Weight: 53.3 kg

DRUGS (12)
  1. MUCODYNE [Concomitant]
     Indication: PNEUMONIA
     Route: 048
     Dates: start: 20101113, end: 20101115
  2. TAMSULOSIN HYDROCHLORIDE [Concomitant]
     Indication: BENIGN PROSTATIC HYPERPLASIA
     Route: 048
     Dates: end: 20101115
  3. GLYCYRON [Concomitant]
     Indication: HEPATIC FUNCTION ABNORMAL
     Route: 048
     Dates: end: 20101115
  4. FEVER REDUCER [Concomitant]
     Indication: PRODUCT USED FOR UNKNOWN INDICATION
  5. CARBENIN [Concomitant]
     Indication: PNEUMONIA
     Dates: start: 20101113, end: 20101113
  6. LOXONIN [Concomitant]
     Indication: PNEUMONIA
     Route: 048
     Dates: start: 20101113, end: 20101115
  7. CLARITHROMYCIN [Suspect]
     Indication: PNEUMONIA
     Route: 048
     Dates: start: 20101113, end: 20101115
  8. AMARYL [Concomitant]
     Indication: DIABETES MELLITUS
     Route: 048
     Dates: end: 20101115
  9. EXPECTORANT [Concomitant]
     Indication: PRODUCT USED FOR UNKNOWN INDICATION
  10. NEOPHYLLIN [Concomitant]
     Indication: PNEUMONIA
     Dates: start: 20101113, end: 20101113
  11. MUCOSTA [Concomitant]
     Indication: PNEUMONIA
     Route: 048
     Dates: start: 20101113, end: 20101115
  12. CONIEL [Concomitant]
     Indication: HYPERTENSION
     Route: 048
     Dates: end: 20101115

REACTIONS (1)
  - DEPRESSED LEVEL OF CONSCIOUSNESS [None]
